FAERS Safety Report 4625887-9 (Version None)
Quarter: 2005Q2

REPORT INFORMATION
  Report Type: 
  Country: None (occurrence: None)
  Receive Date: 20050404
  Receipt Date: 20050323
  Transmission Date: 20051028
  Serious: Yes (Other)
  Sender: FDA-Public Use
  Company Number: US-BRISTOL-MYERS SQUIBB COMPANY-12910782

PATIENT

DRUGS (1)
  1. ATAZANAVIR [Suspect]

REACTIONS (1)
  - NEUROPATHY PERIPHERAL [None]
